FAERS Safety Report 14525806 (Version 1)
Quarter: 2018Q1

REPORT INFORMATION
  Report Type: Spontaneous
  Country: SE (occurrence: SE)
  Receive Date: 20180213
  Receipt Date: 20180213
  Transmission Date: 20180509
  Serious: Yes (Hospitalization, Congenital Anomaly)
  Sender: FDA-Public Use
  Company Number: SE-AUROBINDO-AUR-APL-2018-005644

PATIENT
  Sex: Female
  Weight: 110 kg

DRUGS (2)
  1. NAPROXEN TABLET [Suspect]
     Active Substance: NAPROXEN
     Indication: JOINT INJURY
  2. NAPROXEN TABLET [Suspect]
     Active Substance: NAPROXEN
     Indication: BACK INJURY
     Dosage: UNK
     Route: 065
     Dates: start: 201404, end: 201701

REACTIONS (3)
  - Intestinal gangrene [Recovered/Resolved with Sequelae]
  - Gastrointestinal mucosal disorder [Recovered/Resolved with Sequelae]
  - Inflammatory bowel disease [Recovered/Resolved with Sequelae]
